FAERS Safety Report 9106599 (Version 1)
Quarter: 2013Q1

REPORT INFORMATION
  Report Type: Spontaneous
  Country: FR (occurrence: FR)
  Receive Date: 20130221
  Receipt Date: 20130221
  Transmission Date: 20140127
  Serious: Yes (Death)
  Sender: FDA-Public Use
  Company Number: PHHY2013FR016843

PATIENT
  Age: 22 Year
  Sex: Female

DRUGS (1)
  1. VOLTARENE [Suspect]
     Indication: ARTHRALGIA
     Route: 048

REACTIONS (3)
  - Gastric perforation [Fatal]
  - Abdominal pain [Fatal]
  - Effusion [Fatal]
